FAERS Safety Report 4871309-2 (Version None)
Quarter: 2005Q4

REPORT INFORMATION
  Report Type: 
  Country: None (occurrence: None)
  Receive Date: 20051229
  Receipt Date: 20051220
  Transmission Date: 20060501
  Serious: Yes (Hospitalization)
  Sender: FDA-Public Use
  Company Number: TPA2005A01698

PATIENT
  Age: 42 Year
  Sex: Male
  Weight: 110.6777 kg

DRUGS (12)
  1. ACTOS [Suspect]
     Indication: DIABETES MELLITUS NON-INSULIN-DEPENDENT
     Dosage: 30 MG, 1 IN 1 D, PER ORAL
     Route: 048
     Dates: start: 20010301
  2. GLUCOVANCE [Concomitant]
  3. INSULIN 70/30 (INSULIN) [Concomitant]
  4. LANTUS [Concomitant]
  5. TOPROL-XL [Concomitant]
  6. VICOPROFEN (VICOPROFEN) [Concomitant]
  7. FLEXERIL [Concomitant]
  8. NEXIUM [Concomitant]
  9. LIPITOR [Concomitant]
  10. NORTRIPTYLINE (NORTRIPTYLINE) [Concomitant]
  11. CYMBALTA (ARICLAIM) [Concomitant]
  12. NASONEX [Concomitant]

REACTIONS (6)
  - ANXIETY [None]
  - BLOOD GLUCOSE INCREASED [None]
  - FEELING ABNORMAL [None]
  - HAEMOGLOBIN INCREASED [None]
  - MYOCARDIAL INFARCTION [None]
  - VISUAL ACUITY REDUCED [None]
